FAERS Safety Report 4818127-9 (Version None)
Quarter: 2005Q4

REPORT INFORMATION
  Report Type: 
  Country: None (occurrence: None)
  Receive Date: 20051102
  Receipt Date: 20051025
  Transmission Date: 20060501
  Serious: Yes (Hospitalization)
  Sender: FDA-Public Use
  Company Number: US-SANOFI-SYNTHELABO-F03200500162

PATIENT
  Sex: Male

DRUGS (16)
  1. ELOXATIN [Suspect]
     Indication: COLORECTAL CANCER
     Route: 042
  2. PANITUMUMAB [Suspect]
     Indication: COLORECTAL CANCER
     Route: 042
     Dates: start: 20050629, end: 20050824
  3. BEVACIZUMAB [Concomitant]
     Route: 042
  4. LISINOPRIL [Concomitant]
     Route: 048
  5. ATORVASTATIN CALCIUM [Concomitant]
     Route: 048
  6. HYDROCHLOROTHIAZIDE [Concomitant]
     Route: 048
  7. IBUPROFEN [Concomitant]
     Route: 048
  8. NAPROXEN [Concomitant]
     Route: 048
  9. LORAZEPAM [Concomitant]
     Route: 060
  10. PROCHLORPERAZINE [Concomitant]
     Route: 048
  11. DOXYCYCLINE [Concomitant]
     Route: 048
  12. TUMS [Concomitant]
     Dosage: UNK
     Route: 048
  13. LOMOTIL [Concomitant]
     Route: 048
  14. LEVOFLOXACIN [Concomitant]
     Route: 048
  15. METRONIDAZOLE [Concomitant]
     Dosage: UNK
     Route: 061
  16. HYDROCORTISONE [Concomitant]
     Dosage: UNK
     Route: 061

REACTIONS (7)
  - BLOOD CALCIUM DECREASED [None]
  - BLOOD MAGNESIUM DECREASED [None]
  - BLOOD SODIUM DECREASED [None]
  - DEHYDRATION [None]
  - ELECTROLYTE DEPLETION [None]
  - PROTEIN TOTAL DECREASED [None]
  - RENAL DISORDER [None]
